FAERS Safety Report 21754999 (Version 2)
Quarter: 2022Q4

REPORT INFORMATION
  Report Type: Spontaneous
  Country: US (occurrence: US)
  Receive Date: 20221220
  Receipt Date: 20221220
  Transmission Date: 20230113
  Serious: No
  Sender: FDA-Public Use
  Company Number: US-RECKITT BENCKISER HEALTHCARE INT LIMITED-RB-084567-2022

PATIENT
  Sex: Female

DRUGS (6)
  1. MUCINEX [Suspect]
     Active Substance: GUAIFENESIN
     Indication: Upper-airway cough syndrome
     Dosage: UNK
     Route: 065
  2. MUCINEX [Suspect]
     Active Substance: GUAIFENESIN
     Indication: Nasal congestion
  3. MUCINEX [Suspect]
     Active Substance: GUAIFENESIN
     Indication: Sinus disorder
  4. DELSYM [Suspect]
     Active Substance: DEXTROMETHORPHAN
     Indication: Upper-airway cough syndrome
     Dosage: UNK
     Route: 065
  5. DELSYM [Suspect]
     Active Substance: DEXTROMETHORPHAN
     Indication: Nasal congestion
  6. DELSYM [Suspect]
     Active Substance: DEXTROMETHORPHAN
     Indication: Sinus disorder

REACTIONS (1)
  - Product use in unapproved indication [Unknown]
